FAERS Safety Report 20651007 (Version 1)
Quarter: 2022Q1

REPORT INFORMATION
  Report Type: Spontaneous
  Country: US (occurrence: US)
  Receive Date: 20220329
  Receipt Date: 20220329
  Transmission Date: 20220424
  Serious: No
  Sender: FDA-Public Use
  Company Number: US-BRISTOL-MYERS SQUIBB COMPANY-2022-011714

PATIENT
  Age: 53 Year
  Sex: Female

DRUGS (1)
  1. ORENCIA [Suspect]
     Active Substance: ABATACEPT
     Indication: Rheumatoid arthritis
     Route: 058
     Dates: start: 20220109

REACTIONS (7)
  - Rheumatoid arthritis [Unknown]
  - Myalgia [Unknown]
  - Neuralgia [Unknown]
  - Abdominal discomfort [Unknown]
  - Sinusitis [Unknown]
  - Arthralgia [Unknown]
  - Malaise [Unknown]
